FAERS Safety Report 4796890-3 (Version None)
Quarter: 2005Q4

REPORT INFORMATION
  Report Type: 
  Country: None (occurrence: None)
  Receive Date: 20051013
  Receipt Date: 20050812
  Transmission Date: 20060501
  Serious: Yes (Hospitalization)
  Sender: FDA-Public Use
  Company Number: 2005AP04414

PATIENT
  Age: 7221 Day
  Sex: Female
  Weight: 53 kg

DRUGS (5)
  1. XYLOCAINE [Suspect]
     Indication: ANAESTHESIA
     Route: 061
     Dates: start: 20050809, end: 20050809
  2. XYLOCAINE [Suspect]
     Indication: ANAESTHESIA
     Route: 061
     Dates: start: 20050809, end: 20050809
  3. XYLOCAINE [Suspect]
     Indication: ANAESTHESIA
     Route: 058
     Dates: start: 20050809, end: 20050809
  4. PROPOFOL [Concomitant]
     Indication: GENERAL ANAESTHESIA
     Route: 042
     Dates: start: 20050809, end: 20050809
  5. FLUMARIN [Concomitant]
     Indication: GENERAL ANAESTHESIA
     Route: 042
     Dates: start: 20050809, end: 20050809

REACTIONS (2)
  - LARYNGEAL OEDEMA [None]
  - RESPIRATORY DISORDER [None]
